FAERS Safety Report 6340834-X (Version None)
Quarter: 2009Q3

REPORT INFORMATION
  Report Type: 
  Country: None (occurrence: None)
  Receive Date: 20090904
  Receipt Date: 20090826
  Transmission Date: 20100115
  Serious: Yes (Hospitalization, Other)
  Sender: FDA-Public Use
  Company Number: CO-ASTRAZENECA-2009SE10488

PATIENT
  Age: 62 Year
  Sex: Male
  Weight: 82 kg

DRUGS (3)
  1. ATACAND [Suspect]
     Indication: HYPERTENSION
     Route: 048
     Dates: start: 20090805, end: 20090805
  2. DILATREND [Concomitant]
     Indication: HYPERTENSION
     Route: 048
     Dates: start: 20080801
  3. NORVASC [Concomitant]
     Dates: end: 20090806

REACTIONS (5)
  - GENERAL PHYSICAL HEALTH DETERIORATION [None]
  - HEADACHE [None]
  - HYPERTENSIVE CRISIS [None]
  - NECK PAIN [None]
  - PALLOR [None]
